FAERS Safety Report 5806173-8 (Version None)
Quarter: 2008Q3

REPORT INFORMATION
  Report Type: 
  Country: None (occurrence: None)
  Receive Date: 20080710
  Receipt Date: 20080707
  Transmission Date: 20090109
  Serious: Yes (Death, Other)
  Sender: FDA-Public Use
  Company Number: US-BRISTOL-MYERS SQUIBB COMPANY-14251409

PATIENT
  Age: 80 Day
  Sex: Male

DRUGS (16)
  1. CEFEPIME [Suspect]
     Route: 042
  2. TOBRAMYCIN [Suspect]
     Indication: LUNG INFECTION
     Dosage: 80MG TWICE DAILY WAS INITIATED AND DOSE INCREASED TO 300MG OD
     Route: 055
  3. VANCOMYCIN [Suspect]
     Dosage: FIRST AND SCOND DOSE WERE 40 AND 30 MG. STOPPED AND RESTARTED
     Route: 042
  4. ALBUTEROL [Concomitant]
     Route: 055
  5. IPRATROPIUM BROMIDE [Concomitant]
     Route: 055
  6. MIDAZOLAM HCL [Concomitant]
  7. MORPHINE [Concomitant]
  8. AMOXICILLIN [Concomitant]
  9. CALCITRIOL [Concomitant]
  10. CHLORAL HYDRATE [Concomitant]
  11. CHLOROTHIAZIDE [Concomitant]
  12. METOCLOPRAMIDE [Concomitant]
  13. RANITIDINE HCL [Concomitant]
  14. ACETAMINOPHEN [Concomitant]
  15. SPIRONOLACTONE [Concomitant]
  16. DIPHENHYDRAMINE HCL [Concomitant]

REACTIONS (3)
  - BRONCHOPNEUMONIA [None]
  - DRUG LEVEL INCREASED [None]
  - SEPSIS [None]
